FAERS Safety Report 20618342 (Version 1)
Quarter: 2022Q1

REPORT INFORMATION
  Report Type: Spontaneous
  Country: JP (occurrence: JP)
  Receive Date: 20220321
  Receipt Date: 20220321
  Transmission Date: 20220423
  Serious: Yes (Hospitalization, Other)
  Sender: FDA-Public Use
  Company Number: JP-SANOFI-2019SA285397

PATIENT
  Age: 16 Month
  Sex: Male

DRUGS (40)
  1. SABRIL [Suspect]
     Active Substance: VIGABATRIN
     Indication: Infantile spasms
     Dosage: 650 MG, BID
     Route: 048
     Dates: start: 20190913, end: 20191225
  2. SABRIL [Suspect]
     Active Substance: VIGABATRIN
     Indication: Infantile spasms
     Dosage: 200 MG, BID
     Route: 048
     Dates: start: 20190830, end: 20190905
  3. SABRIL [Suspect]
     Active Substance: VIGABATRIN
     Indication: Epilepsy
     Dosage: 400 MG, BID
     Route: 048
     Dates: start: 20190905, end: 20190913
  4. SABRIL [Suspect]
     Active Substance: VIGABATRIN
     Dosage: 400 MG, BID
     Route: 048
     Dates: start: 20191225, end: 20200122
  5. SABRIL [Suspect]
     Active Substance: VIGABATRIN
     Dosage: 650 MG, BID
     Route: 048
     Dates: start: 20200122, end: 20200227
  6. SABRIL [Suspect]
     Active Substance: VIGABATRIN
     Dosage: 450 MG, BID
     Route: 048
     Dates: start: 20200227, end: 20200327
  7. SABRIL [Suspect]
     Active Substance: VIGABATRIN
     Dosage: 400 MG, BID
     Route: 048
     Dates: start: 20200328, end: 20201023
  8. SABRIL [Suspect]
     Active Substance: VIGABATRIN
     Dosage: 300 MG, BID
     Route: 048
     Dates: start: 20201024, end: 20210124
  9. SABRIL [Suspect]
     Active Substance: VIGABATRIN
     Dosage: 200 MG, BID
     Route: 048
     Dates: start: 20210125, end: 20210223
  10. VALPROATE SODIUM [Concomitant]
     Active Substance: VALPROATE SODIUM
     Indication: Infantile spasms
     Dosage: 450 MG/DAY
     Route: 048
     Dates: end: 20210120
  11. VALPROATE SODIUM [Concomitant]
     Active Substance: VALPROATE SODIUM
     Indication: Epilepsy
     Dosage: 550 MG/DAY
     Route: 048
     Dates: start: 20210120
  12. ZONISAMIDE [Concomitant]
     Active Substance: ZONISAMIDE
     Indication: Infantile spasms
     Dosage: DAILY DOSE: 90 MG
     Route: 048
     Dates: end: 20191016
  13. ZONISAMIDE [Concomitant]
     Active Substance: ZONISAMIDE
     Indication: Epilepsy
  14. LAMICTAL [Concomitant]
     Active Substance: LAMOTRIGINE
     Indication: Infantile spasms
     Dosage: DAILY DOSE: 28 MG
     Route: 048
  15. LAMICTAL [Concomitant]
     Active Substance: LAMOTRIGINE
     Indication: Epilepsy
     Dosage: DAILY DOSE: 28 MG
     Route: 048
     Dates: start: 201902
  16. LAMICTAL [Concomitant]
     Active Substance: LAMOTRIGINE
     Dosage: DAILY DOSE: 28 MG
     Route: 048
     Dates: start: 20200522
  17. LAMICTAL [Concomitant]
     Active Substance: LAMOTRIGINE
     Dosage: DAILY DOSE: 30 MG
     Route: 048
     Dates: start: 20200612
  18. LAMICTAL [Concomitant]
     Active Substance: LAMOTRIGINE
     Dosage: DAILY DOSE: 32 MG
     Route: 048
     Dates: start: 20200703
  19. LAMICTAL [Concomitant]
     Active Substance: LAMOTRIGINE
     Dosage: DAILY DOSE: 34 MG
     Route: 048
     Dates: start: 20200724
  20. LAMICTAL [Concomitant]
     Active Substance: LAMOTRIGINE
     Dosage: DAILY DOSE: 36 MG
     Route: 048
     Dates: start: 20200808
  21. LAMICTAL [Concomitant]
     Active Substance: LAMOTRIGINE
     Dosage: DAILY DOSE: 38 MG
     Route: 048
     Dates: start: 20200822
  22. TOPIRAMATE [Concomitant]
     Active Substance: TOPIRAMATE
     Indication: Infantile spasms
     Dosage: 8 MG, QD
     Route: 048
     Dates: start: 20191130
  23. TOPIRAMATE [Concomitant]
     Active Substance: TOPIRAMATE
     Indication: Epilepsy
     Dosage: 15 MG, QD
     Route: 048
     Dates: start: 20191217
  24. TOPIRAMATE [Concomitant]
     Active Substance: TOPIRAMATE
     Dosage: 20 MG, QD
     Route: 048
     Dates: start: 20200120, end: 20200226
  25. TOPIRAMATE [Concomitant]
     Active Substance: TOPIRAMATE
     Dosage: 30 MG, QD
     Route: 048
     Dates: start: 20200227
  26. TOPIRAMATE [Concomitant]
     Active Substance: TOPIRAMATE
     Dosage: DAILY DOSE: 40 MG
     Route: 048
     Dates: start: 2020
  27. MAGNESIUM OXIDE [Concomitant]
     Active Substance: MAGNESIUM OXIDE
     Indication: Product used for unknown indication
     Dosage: 0.4 G, QD
     Route: 048
     Dates: start: 20191225
  28. LEVOCARNITINE HYDROCHLORIDE [Concomitant]
     Active Substance: LEVOCARNITINE HYDROCHLORIDE
     Indication: Product used for unknown indication
     Dosage: 100 MG, QD
     Route: 065
     Dates: start: 201812
  29. LAMOTRIGINE [Concomitant]
     Active Substance: LAMOTRIGINE
     Indication: Infantile spasms
     Dosage: 38 MG/DAY
     Route: 048
     Dates: start: 20200822, end: 20200906
  30. LAMOTRIGINE [Concomitant]
     Active Substance: LAMOTRIGINE
     Indication: Epilepsy
     Dosage: 40 MG/DAY
     Route: 048
     Dates: start: 20200907, end: 20200920
  31. LAMOTRIGINE [Concomitant]
     Active Substance: LAMOTRIGINE
     Dosage: 42 MG/DAY
     Route: 048
     Dates: start: 20200921, end: 20201004
  32. LAMOTRIGINE [Concomitant]
     Active Substance: LAMOTRIGINE
     Dosage: 44 MG/DAY
     Route: 048
     Dates: start: 20201005, end: 20210119
  33. LAMOTRIGINE [Concomitant]
     Active Substance: LAMOTRIGINE
     Dosage: 48 MG/DAY
     Route: 048
     Dates: start: 20210120, end: 20210429
  34. LAMOTRIGINE [Concomitant]
     Active Substance: LAMOTRIGINE
     Dosage: 50 MG/DAY
     Route: 048
     Dates: start: 20210430
  35. TOPIRAMATE [Concomitant]
     Active Substance: TOPIRAMATE
     Indication: Infantile spasms
     Dosage: 40 MG/DAY
     Route: 048
  36. TOPIRAMATE [Concomitant]
     Active Substance: TOPIRAMATE
     Indication: Epilepsy
  37. FYCOMPA [Concomitant]
     Active Substance: PERAMPANEL
     Indication: Infantile spasms
     Dosage: 0.5 MG/DAY
     Route: 048
     Dates: end: 20210103
  38. FYCOMPA [Concomitant]
     Active Substance: PERAMPANEL
     Indication: Epilepsy
     Dosage: 1 MG/DAY
     Route: 048
     Dates: start: 20210104, end: 20210131
  39. FYCOMPA [Concomitant]
     Active Substance: PERAMPANEL
     Dosage: 2 MG/DAY
     Route: 048
     Dates: start: 20210201, end: 20210222
  40. FYCOMPA [Concomitant]
     Active Substance: PERAMPANEL
     Dosage: 3 MG/DAY
     Route: 048
     Dates: start: 20210223

REACTIONS (10)
  - Toxic encephalopathy [Recovering/Resolving]
  - Magnetic resonance imaging head abnormal [Recovering/Resolving]
  - Pneumonia [Recovered/Resolved]
  - Respiratory failure [Recovered/Resolved]
  - Pneumonia [Recovered/Resolved]
  - Respiratory failure [Recovered/Resolved]
  - Bronchitis [Not Recovered/Not Resolved]
  - Respiratory failure [Not Recovered/Not Resolved]
  - Retinogram abnormal [Unknown]
  - Retinogram abnormal [Recovered/Resolved]

NARRATIVE: CASE EVENT DATE: 20191012
